FAERS Safety Report 7739939-8 (Version None)
Quarter: 2011Q3

REPORT INFORMATION
  Report Type: 
  Country: None (occurrence: None)
  Receive Date: 20110909
  Receipt Date: 20110907
  Transmission Date: 20111222
  Serious: Yes (Death)
  Sender: FDA-Public Use
  Company Number: PHEH2011US03570

PATIENT
  Sex: Male
  Weight: 48.744 kg

DRUGS (1)
  1. EXJADE [Suspect]
     Indication: NEOPLASM
     Dosage: 2000 MG, DAILY
     Route: 048
     Dates: start: 20100922

REACTIONS (1)
  - SEPSIS [None]
